FAERS Safety Report 4522625-5 (Version None)
Quarter: 2004Q4

REPORT INFORMATION
  Report Type: 
  Country: None (occurrence: None)
  Receive Date: 20041207
  Receipt Date: 20041117
  Transmission Date: 20050328
  Serious: Yes (Other)
  Sender: FDA-Public Use
  Company Number: DE_041014524

PATIENT
  Age: 78 Year
  Sex: Female
  Weight: 58 kg

DRUGS (3)
  1. YENTREVE (DULOXETINE HYDROHCLORIDE) [Suspect]
     Indication: STRESS INCONTINENCE
     Dosage: 40 MG DAY
     Dates: start: 20041011, end: 20041015
  2. LEVOTHYROXINE SODIUM [Concomitant]
  3. CORDICANT - SLOW RELEASE (NIFEDIPINE PA) [Concomitant]

REACTIONS (3)
  - ATRIAL FIBRILLATION [None]
  - CIRCULATORY COLLAPSE [None]
  - TACHYCARDIA [None]
